FAERS Safety Report 14320870 (Version 1)
Quarter: 2017Q4

REPORT INFORMATION
  Report Type: Spontaneous
  Country: TT (occurrence: TT)
  Receive Date: 20171223
  Receipt Date: 20171223
  Transmission Date: 20180321
  Serious: Yes (Hospitalization)
  Sender: FDA-Public Use
  Company Number: TT-GLENMARK PHARMACEUTICALS-2017GMK030073

PATIENT
  Age: 23 Year
  Sex: Female

DRUGS (1)
  1. NORETHINDRONE. [Suspect]
     Active Substance: NORETHINDRONE
     Indication: INJECTABLE CONTRACEPTION
     Dosage: EVERY 2 MONTHS
     Route: 051

REACTIONS (2)
  - Cerebral venous thrombosis [Recovered/Resolved]
  - Cerebral infarction [Recovered/Resolved]
